FAERS Safety Report 8815944 (Version 2)
Quarter: 2012Q4

REPORT INFORMATION
  Report Type: 
  Country: US (occurrence: US)
  Receive Date: 20120928
  Receipt Date: 20121019
  Transmission Date: 20130627
  Serious: Yes (Death, Other)
  Sender: FDA-Public Use
  Company Number: US-ROCHE-1125698

PATIENT
  Sex: Female

DRUGS (5)
  1. HERCEPTIN [Suspect]
     Indication: BREAST CANCER METASTATIC
     Route: 065
     Dates: start: 19990109
  2. METHOTREXATE [Concomitant]
  3. 5-FU [Concomitant]
  4. CYTOXAN [Concomitant]
  5. NAVELBINE [Concomitant]

REACTIONS (3)
  - Death [Fatal]
  - Metastases to bone [Unknown]
  - Metastases to liver [Unknown]
